FAERS Safety Report 21945456 (Version 1)
Quarter: 2023Q1

REPORT INFORMATION
  Report Type: Spontaneous
  Country: CN (occurrence: CN)
  Receive Date: 20230202
  Receipt Date: 20230202
  Transmission Date: 20230417
  Serious: Yes (Other)
  Sender: FDA-Public Use
  Company Number: None

PATIENT
  Age: 48 Year
  Sex: Female
  Weight: 68 kg

DRUGS (4)
  1. CYCLOPHOSPHAMIDE [Suspect]
     Active Substance: CYCLOPHOSPHAMIDE
     Indication: Breast cancer female
     Dosage: 900 MG, QD (DILUTED WITH 100 ML OF 0.9% SODIUM CHLORIDE)
     Route: 041
     Dates: start: 20221129, end: 20221129
  2. SODIUM CHLORIDE [Suspect]
     Active Substance: SODIUM CHLORIDE
     Indication: Medication dilution
     Dosage: 100 ML, ONCE DAILY, DOSAGE FORM: INJECTION, USED TO DILUTE 900 MG CYCLOPHOSPHAMIDE
     Route: 041
     Dates: start: 20221129, end: 20221129
  3. DEXTROSE MONOHYDRATE [Suspect]
     Active Substance: DEXTROSE MONOHYDRATE
     Indication: Medication dilution
     Dosage: 250 ML, ONCE DAILY, DOSAGE FORM: INJECTION, USED TO DILUTE 60 MG DOXORUBICIN HYDROCHLORIDE LIPOSOME
     Route: 041
     Dates: start: 20221129, end: 20221129
  4. DOXORUBICIN HYDROCHLORIDE [Suspect]
     Active Substance: DOXORUBICIN HYDROCHLORIDE
     Indication: Breast cancer female
     Dosage: 60 MG, ONCE DAILY, DILUTED WITH 250 ML OF 5% GLUCOSE
     Route: 041
     Dates: start: 20221129, end: 20221129

REACTIONS (1)
  - Neutrophil count decreased [Recovering/Resolving]

NARRATIVE: CASE EVENT DATE: 20221213
